FAERS Safety Report 6920729-0 (Version None)
Quarter: 2010Q3

REPORT INFORMATION
  Report Type: 
  Country: None (occurrence: None)
  Receive Date: 20100812
  Receipt Date: 20100731
  Transmission Date: 20110219
  Serious: No
  Sender: FDA-Public Use
  Company Number: US-B.I. PHARMACEUTICALS,INC./RIDGEFIELD-2010-BP-08806BP

PATIENT
  Age: 86 Year
  Sex: Male

DRUGS (9)
  1. SPIRIVA [Suspect]
     Indication: DYSPNOEA
     Dosage: 18 MCG
     Route: 055
     Dates: start: 20100630
  2. VENTOLIN [Concomitant]
     Indication: DYSPNOEA
     Dates: start: 20100501
  3. LEVOTHYROXINE [Concomitant]
     Indication: HYPOTHYROIDISM
     Dates: start: 20100401
  4. GLIPIZIDE [Concomitant]
     Indication: TYPE 2 DIABETES MELLITUS
     Dosage: 20 MG
     Dates: start: 20020101
  5. METOPROLOL TARTRATE [Concomitant]
     Indication: HYPERTENSION
     Dosage: 20 MG
     Dates: start: 20080101
  6. METFORMIN HCL [Concomitant]
     Indication: TYPE 2 DIABETES MELLITUS
     Dosage: 20 MG
     Dates: start: 20020101
  7. ZETIA [Concomitant]
     Indication: PROPHYLAXIS
     Dosage: 20 MG
     Dates: start: 20090101
  8. FUROSEMIDE [Concomitant]
     Indication: DYSPNOEA
     Dosage: 20 MG
     Dates: start: 20100501
  9. POTASSIUM CHLORIDE [Concomitant]
     Indication: DIURETIC THERAPY
     Dosage: 20 MG
     Dates: start: 20100501

REACTIONS (1)
  - NECK PAIN [None]
